FAERS Safety Report 17874465 (Version 2)
Quarter: 2020Q2

REPORT INFORMATION
  Report Type: Spontaneous
  Country: DE (occurrence: DE)
  Receive Date: 20200609
  Receipt Date: 20200611
  Transmission Date: 20200714
  Serious: Yes (Hospitalization)
  Sender: FDA-Public Use
  Company Number: DE-MYLANLABS-2020M1054826

PATIENT
  Age: 73 Year
  Sex: Female
  Weight: 74 kg

DRUGS (7)
  1. METHOTREXATE (METHOTREXATE SODIUM) [Interacting]
     Active Substance: METHOTREXATE SODIUM
     Indication: PRODUCT USED FOR UNKNOWN INDICATION
     Dosage: UNK(NK NK, ABGESETZT)
     Route: 048
  2. METFORMIN [Suspect]
     Active Substance: METFORMIN HYDROCHLORIDE
     Indication: PRODUCT USED FOR UNKNOWN INDICATION
     Dosage: 1000 MILLIGRAM(1000 MG, 0.5-0-0-0, TABLETTEN)
     Route: 048
  3. TORASEMIDE [Suspect]
     Active Substance: TORSEMIDE
     Indication: PRODUCT USED FOR UNKNOWN INDICATION
     Dosage: 5 MILLIGRAM(5 MG, 0.5-0-0-0, TABLETTEN)
     Route: 048
  4. MIRTAZAPIN [Concomitant]
     Active Substance: MIRTAZAPINE
     Dosage: 15 MILLIGRAM(15 MG, 0-0-0.5-0, TABLETTEN)
     Route: 048
  5. VIGANTOLETTEN [Concomitant]
     Active Substance: CHOLECALCIFEROL
     Dosage: 1000 INTERNATIONAL UNIT(1000 IE, 1-0-0-0, TABLETTEN)
     Route: 048
  6. CITALOPRAM [Concomitant]
     Active Substance: CITALOPRAM HYDROBROMIDE
     Dosage: 10 MILLIGRAM(10 MG, 1-0-0-0, TABLETTEN)
     Route: 048
  7. PREDNISOLON                        /00016201/ [Concomitant]
     Active Substance: PREDNISOLONE
     Dosage: 2.5 MILLIGRAM(2.5 MG, 1-0-0-0, TABLETTEN)
     Route: 048

REACTIONS (5)
  - Product prescribing error [Unknown]
  - Polydipsia [Unknown]
  - Drug interaction [Unknown]
  - Renal impairment [Unknown]
  - Thirst [Unknown]

NARRATIVE: CASE EVENT DATE: 20191121
